FAERS Safety Report 17054467 (Version 1)
Quarter: 2019Q4

REPORT INFORMATION
  Report Type: Spontaneous
  Country: SE (occurrence: SE)
  Receive Date: 20191120
  Receipt Date: 20191120
  Transmission Date: 20200122
  Serious: Yes (Hospitalization)
  Sender: FDA-Public Use
  Company Number: SE-ASTRAZENECA-2019SF61264

PATIENT
  Sex: Female

DRUGS (5)
  1. ALIMEMAZINE [Suspect]
     Active Substance: TRIMEPRAZINE
     Dosage: 40.0MG UNKNOWN
     Route: 065
     Dates: start: 20180625, end: 20180625
  2. QUETIAPINE. [Suspect]
     Active Substance: QUETIAPINE
     Dosage: 300.0MG UNKNOWN
     Route: 048
     Dates: start: 20180625, end: 20180625
  3. LERGIGAN (PROMETHAZINE HYDROCHLORIDE) [Suspect]
     Active Substance: PROMETHAZINE HYDROCHLORIDE
     Dosage: 250.0MG UNKNOWN
     Route: 048
     Dates: start: 20180625, end: 20180625
  4. ATARAX [Suspect]
     Active Substance: HYDROXYZINE HYDROCHLORIDE
     Dosage: 75.0MG UNKNOWN
     Route: 065
     Dates: start: 20180625, end: 20180625
  5. LAMOTRIGINE. [Suspect]
     Active Substance: LAMOTRIGINE
     Dosage: 300.0MG UNKNOWN
     Route: 065
     Dates: start: 20180625, end: 20180625

REACTIONS (2)
  - Intentional self-injury [Unknown]
  - Intentional overdose [Unknown]

NARRATIVE: CASE EVENT DATE: 20180625
